FAERS Safety Report 5091910-3 (Version None)
Quarter: 2006Q3

REPORT INFORMATION
  Report Type: 
  Country: None (occurrence: None)
  Receive Date: 20060825
  Receipt Date: 20060809
  Transmission Date: 20061208
  Serious: Yes (Hospitalization)
  Sender: FDA-Public Use
  Company Number: JP_050606693

PATIENT
  Age: 56 Year
  Sex: Female
  Weight: 38 kg

DRUGS (9)
  1. ZYPREXA [Suspect]
     Indication: SCHIZOPHRENIA
     Dosage: 10 + 15 + 20 MG, DAILY (1/D), ORAL - SEE IMAGE
     Route: 048
     Dates: start: 20040520, end: 20040720
  2. ZYPREXA [Suspect]
     Indication: SCHIZOPHRENIA
     Dosage: 10 + 15 + 20 MG, DAILY (1/D), ORAL - SEE IMAGE
     Route: 048
     Dates: start: 20040721, end: 20040802
  3. ZYPREXA [Suspect]
     Indication: SCHIZOPHRENIA
     Dosage: 10 + 15 + 20 MG, DAILY (1/D), ORAL - SEE IMAGE
     Route: 048
     Dates: start: 20040803, end: 20040921
  4. ZYPREXA [Suspect]
     Indication: SCHIZOPHRENIA
     Dosage: 10 + 15 + 20 MG, DAILY (1/D), ORAL - SEE IMAGE
     Route: 048
     Dates: start: 20040922, end: 20050419
  5. ZYPREXA [Suspect]
     Indication: SCHIZOPHRENIA
     Dosage: 10 + 15 + 20 MG, DAILY (1/D), ORAL - SEE IMAGE
     Route: 048
     Dates: start: 20050420
  6. MERCAZOLE (THIAMAZOLE) [Concomitant]
  7. ROHYPNOL (FLUNITRAEPAM) [Concomitant]
  8. TASMOLIN (BIPERIDEN) [Concomitant]
  9. LENDORM [Concomitant]

REACTIONS (4)
  - DEPRESSIVE SYMPTOM [None]
  - SOMNOLENCE [None]
  - SUICIDE ATTEMPT [None]
  - TREMOR [None]
